FAERS Safety Report 22066150 (Version 1)
Quarter: 2023Q1

REPORT INFORMATION
  Report Type: Spontaneous
  Country: CN (occurrence: CN)
  Receive Date: 20230306
  Receipt Date: 20230306
  Transmission Date: 20230417
  Serious: Yes (Hospitalization)
  Sender: FDA-Public Use
  Company Number: CN-ELI_LILLY_AND_COMPANY-CN202302011172

PATIENT
  Age: 22 Year
  Sex: Male
  Weight: 47.5 kg

DRUGS (1)
  1. HUMALOG [Suspect]
     Active Substance: INSULIN LISPRO
     Indication: Blood glucose increased
     Dosage: 3 INTERNATIONAL UNIT, DAILY
     Route: 058
     Dates: start: 20230129, end: 20230201

REACTIONS (4)
  - Trismus [Recovering/Resolving]
  - Seizure [Recovering/Resolving]
  - Asthenia [Recovering/Resolving]
  - Hypoglycaemia [Recovering/Resolving]

NARRATIVE: CASE EVENT DATE: 20230129
